FAERS Safety Report 5465548-X (Version None)
Quarter: 2007Q3

REPORT INFORMATION
  Report Type: 
  Country: None (occurrence: None)
  Receive Date: 20070919
  Receipt Date: 20070911
  Transmission Date: 20080115
  Serious: Yes (Hospitalization)
  Sender: FDA-Public Use
  Company Number: TIF2007A00167

PATIENT
  Age: 35 Year
  Sex: Female

DRUGS (14)
  1. ACTOS [Suspect]
     Indication: METABOLIC SYNDROME
     Dosage: 15 MG, ORAL
     Route: 048
     Dates: start: 20070728, end: 20070818
  2. TORSEMIDE [Suspect]
     Dosage: 10 MG
  3. RAMIPRIL [Suspect]
     Dosage: 10 MG
  4. TRAZODONE HYDROCHLORIDE [Suspect]
  5. TICLOPIDINE HCL [Suspect]
     Dosage: 500 MG (250 MG,2 IN 1 D)
  6. NEURONTIN [Suspect]
     Dosage: 900 MG (300 MG,3 IN 1D)
  7. CITALOPRAM HYDROBROMIDE [Concomitant]
  8. NOVORAPID (INSULIN ASPART) [Concomitant]
  9. NOVORAPID (INSULIN ASPART) [Concomitant]
  10. NOVOMIX (INSULIN ASPART) [Concomitant]
  11. NORVASC [Concomitant]
  12. LASIX [Concomitant]
  13. CATAPRESAN TTS-2 (CLONIDINE) [Concomitant]
  14. MEDIPO (SIMVASTATIN) [Concomitant]

REACTIONS (4)
  - CARDIAC ASTHMA [None]
  - DYSPNOEA [None]
  - FLUID RETENTION [None]
  - WEIGHT INCREASED [None]
